FAERS Safety Report 17915562 (Version 1)
Quarter: 2020Q2

REPORT INFORMATION
  Report Type: Spontaneous
  Country: US (occurrence: US)
  Receive Date: 20200619
  Receipt Date: 20200619
  Transmission Date: 20200714
  Serious: Yes (Hospitalization)
  Sender: FDA-Public Use
  Company Number: US-LEADINGPHARMA-US-2020LEALIT00094

PATIENT
  Age: 40 Year
  Sex: Male

DRUGS (5)
  1. NITROPRUSSIDE [Concomitant]
     Active Substance: NITROPRUSSIDE
     Dosage: 0.2 MCG/KG/MIN
     Route: 065
  2. LORAZEPAM TABLETS USP [Suspect]
     Active Substance: LORAZEPAM
     Dosage: 2 MG/HR
  3. LORAZEPAM TABLETS USP [Suspect]
     Active Substance: LORAZEPAM
     Dosage: 1 MG/HR DOSE REDUCTION
  4. LORAZEPAM TABLETS USP [Suspect]
     Active Substance: LORAZEPAM
     Indication: HYPERTENSIVE EMERGENCY
     Dosage: 0.5-2 MG
     Route: 040
  5. DEXMEDETOMIDINE. [Concomitant]
     Active Substance: DEXMEDETOMIDINE
     Dosage: 0.2-0.7 MCG/KG/HR
     Route: 065

REACTIONS (1)
  - Withdrawal hypertension [Unknown]
